FAERS Safety Report 5477124-3 (Version None)
Quarter: 2007Q4

REPORT INFORMATION
  Report Type: 
  Country: None (occurrence: None)
  Receive Date: 20071004
  Receipt Date: 20070921
  Transmission Date: 20080405
  Serious: Yes (Other)
  Sender: FDA-Public Use
  Company Number: DE-ELI_LILLY_AND_COMPANY-DE200709004515

PATIENT
  Sex: Male

DRUGS (6)
  1. EXENATIDE [Suspect]
     Dosage: 5 UG, 2/D
     Route: 058
  2. ACOMPLIA [Concomitant]
     Dosage: 20 MG, DAILY (1/D)
  3. OMEPRAZOLE [Concomitant]
  4. METFORMIN HCL [Concomitant]
  5. ALLOPURINOL [Concomitant]
  6. RAMIPRIL [Concomitant]

REACTIONS (1)
  - PANCREATITIS [None]
